FAERS Safety Report 25782367 (Version 6)
Quarter: 2025Q4

REPORT INFORMATION
  Report Type: Report from Study
  Country: CA (occurrence: CA)
  Receive Date: 20250909
  Receipt Date: 20251208
  Transmission Date: 20260119
  Serious: Yes (Death, Hospitalization, Other)
  Sender: BIOGEN
  Company Number: CA-BIOGEN-2025BI01323251

PATIENT
  Age: 63 Year
  Sex: Male

DRUGS (4)
  1. TYSABRI [Suspect]
     Active Substance: NATALIZUMAB
     Indication: Multiple sclerosis
     Dosage: OFF LABEL USE: EVERY 6 WEEKS
     Dates: start: 201908, end: 202509
  2. TYSABRI [Suspect]
     Active Substance: NATALIZUMAB
     Dates: start: 20181220, end: 20250924
  3. TYSABRI [Suspect]
     Active Substance: NATALIZUMAB
     Dates: start: 20181220, end: 20250924
  4. TYSABRI [Suspect]
     Active Substance: NATALIZUMAB

REACTIONS (3)
  - Death [Fatal]
  - Pathological fracture [Unknown]
  - Oesophageal cancer metastatic [Unknown]

NARRATIVE: CASE EVENT DATE: 20250818
